FAERS Safety Report 12907079 (Version 1)
Quarter: 2016Q4

REPORT INFORMATION
  Report Type: Spontaneous
  Country: JP (occurrence: JP)
  Receive Date: 20161103
  Receipt Date: 20161103
  Transmission Date: 20170207
  Serious: Yes (Death, Hospitalization)
  Sender: FDA-Public Use
  Company Number: JP-INGENUS PHARMACEUTICALS NJ, LLC-ING201610-000082

PATIENT
  Age: 64 Year
  Sex: Male

DRUGS (8)
  1. OMEPRAZOLE. [Concomitant]
     Active Substance: OMEPRAZOLE
  2. DOPAMINE [Concomitant]
     Active Substance: DOPAMINE\DOPAMINE HYDROCHLORIDE
  3. AMPICILLIN/SULBACTAM [Concomitant]
     Active Substance: AMPICILLIN SODIUM\SULBACTAM SODIUM
     Indication: PYREXIA
  4. HEPARIN [Concomitant]
     Active Substance: HEPARIN SODIUM
  5. OXYGEN. [Concomitant]
     Active Substance: OXYGEN
  6. NIFEKALANT [Concomitant]
     Active Substance: NIFEKALANT
     Indication: VENTRICULAR FIBRILLATION
  7. TICLOPIDINE [Suspect]
     Active Substance: TICLOPIDINE
  8. CARISOPRODOL AND ASPIRIN [Suspect]
     Active Substance: ASPIRIN\CARISOPRODOL
     Route: 048

REACTIONS (2)
  - Pulmonary alveolar haemorrhage [Fatal]
  - Acute respiratory failure [None]
